FAERS Safety Report 21565213 (Version 2)
Quarter: 2022Q4

REPORT INFORMATION
  Report Type: Spontaneous
  Country: US (occurrence: US)
  Receive Date: 20221108
  Receipt Date: 20221110
  Transmission Date: 20230113
  Serious: Yes (Death, Other)
  Sender: FDA-Public Use
  Company Number: US-BRISTOL-MYERS SQUIBB COMPANY-2022-133608

PATIENT
  Age: 86 Year
  Sex: Female

DRUGS (11)
  1. POMALYST [Suspect]
     Active Substance: POMALIDOMIDE
     Indication: Plasma cell myeloma
     Dosage: DOSE: 2MG; FREQ: 1 ONCE DAILY CAPSULE BY MOUTH FOR 21 DAYS OUT OF 28-DAY CYCLE.
     Route: 048
  2. ACYCLOVIR [Concomitant]
     Active Substance: ACYCLOVIR
     Route: 065
  3. ALLOPURINOL [Concomitant]
     Active Substance: ALLOPURINOL
     Route: 065
  4. AMLODIPINE [Concomitant]
     Active Substance: AMLODIPINE BESYLATE
     Route: 065
  5. DEXAMETHASONE [Concomitant]
     Active Substance: DEXAMETHASONE
     Route: 065
  6. LOSARTAN [Concomitant]
     Active Substance: LOSARTAN
     Route: 065
  7. ASPIRIN [Concomitant]
     Active Substance: ASPIRIN
     Route: 065
  8. LIPITOR [Concomitant]
     Active Substance: ATORVASTATIN CALCIUM
     Route: 065
  9. CARVEDILOL [Concomitant]
     Active Substance: CARVEDILOL
     Route: 065
  10. VITAMIN B [Concomitant]
     Active Substance: VITAMIN B
     Route: 065
  11. IRON [Concomitant]
     Active Substance: IRON
     Route: 065

REACTIONS (1)
  - Death [Fatal]

NARRATIVE: CASE EVENT DATE: 20220906
